FAERS Safety Report 21185759 (Version 1)
Quarter: 2022Q3

REPORT INFORMATION
  Report Type: Spontaneous
  Country: GB (occurrence: GB)
  Receive Date: 20220808
  Receipt Date: 20220808
  Transmission Date: 20221027
  Serious: Yes (Other)
  Sender: FDA-Public Use
  Company Number: None

PATIENT
  Age: 78 Year
  Sex: Male
  Weight: 57 kg

DRUGS (28)
  1. METFORMIN [Suspect]
     Active Substance: METFORMIN HYDROCHLORIDE
     Indication: Product used for unknown indication
     Dosage: 500 MILLIGRAM, QD
     Route: 065
     Dates: start: 20210923
  2. AMITRIPTYLINE HYDROCHLORIDE [Concomitant]
     Active Substance: AMITRIPTYLINE HYDROCHLORIDE
     Dosage: 1 DOSAGE FORM, HS (AT NIGHT. IF NO SIDE EFFECTS TH..)
     Route: 065
     Dates: start: 20220711
  3. ASPIRIN [Concomitant]
     Active Substance: ASPIRIN
     Dosage: 1 DOSAGE FORM, AM (TO BE TAKEN IN THE MORNING)
     Route: 065
     Dates: start: 20200602
  4. ATORVASTATIN [Concomitant]
     Active Substance: ATORVASTATIN
     Dosage: 1 DOSAGE FORM, QD
     Route: 065
     Dates: start: 20220311
  5. BETAMETHASONE VALERATE [Concomitant]
     Active Substance: BETAMETHASONE VALERATE
     Dosage: 1 DOSAGE FORM, BID
     Route: 065
     Dates: start: 20220701
  6. BRIMONIDINE TARTRATE [Concomitant]
     Active Substance: BRIMONIDINE TARTRATE
     Dosage: 1 DOSAGE FORM, BID (INSTILL  TO BOITH EYES)
     Route: 065
     Dates: start: 20210419
  7. BRINZOLAMIDE [Concomitant]
     Active Substance: BRINZOLAMIDE
     Dosage: 1 DOSAGE FORM, BID (INSTILL  TO BOTH EYES)
     Route: 065
     Dates: start: 20210701
  8. CANDESARTAN [Concomitant]
     Active Substance: CANDESARTAN
     Dosage: 1 DOSAGE FORM, QD
     Route: 065
     Dates: start: 20200602
  9. CLOPIDOGREL [Concomitant]
     Active Substance: CLOPIDOGREL BISULFATE
     Dosage: 1 DOSAGE FORM, QD (STOP JAN 2023)
     Route: 065
     Dates: start: 20220118
  10. DAPAGLIFLOZIN [Concomitant]
     Active Substance: DAPAGLIFLOZIN
     Dosage: 1 DOSAGE FORM, QD (IN AM)
     Route: 065
     Dates: start: 20211001
  11. CLOBETASOL [Concomitant]
     Active Substance: CLOBETASOL
     Dosage: UNK UNK, HS (APPLY AT NIGHT)
     Route: 065
     Dates: start: 20220701, end: 20220702
  12. DOXAZOSIN [Concomitant]
     Active Substance: DOXAZOSIN MESYLATE
     Dosage: 1 DOSAGE FORM, HS (TAKE AT  BEDTIME)
     Route: 065
     Dates: start: 20210504
  13. FENBID [Concomitant]
     Dosage: 1 DOSAGE FORM, TID
     Route: 065
     Dates: start: 20220701
  14. FLUPENTIXOL [Concomitant]
     Active Substance: FLUPENTIXOL
     Dosage: 1 DOSAGE FORM, QD
     Route: 065
     Dates: start: 20220225
  15. GLIMEPIRIDE [Concomitant]
     Active Substance: GLIMEPIRIDE
     Dosage: 1 DOSAGE FORM, QD
     Route: 065
     Dates: start: 20220708
  16. HYALURONATE SODIUM [Concomitant]
     Active Substance: HYALURONATE SODIUM
     Dosage: UNK(USE 4-TIMES IN BOTH EYES AS DIRECTED)
     Route: 065
     Dates: start: 20200731
  17. KETOCONAZOLE [Concomitant]
     Active Substance: KETOCONAZOLE
     Dosage: UNK (USE AS DIRECTED)
     Route: 065
     Dates: start: 20220701, end: 20220702
  18. LANSOPRAZOLE [Concomitant]
     Active Substance: LANSOPRAZOLE
     Dosage: 1 DOSAGE FORM, QD
     Route: 065
     Dates: start: 20220311
  19. LATANOPROST [Concomitant]
     Active Substance: LATANOPROST
     Dosage: 1 DOSAGE FORM, PM (IN THE EVENING)
     Route: 065
     Dates: start: 20210701
  20. LINAGLIPTIN [Concomitant]
     Active Substance: LINAGLIPTIN
     Dosage: 1 DOSAGE FORM, QD
     Route: 065
     Dates: start: 20211018
  21. ISOSORBIDE MONONITRATE [Concomitant]
     Active Substance: ISOSORBIDE MONONITRATE
     Dosage: 60 MILLIGRAM, QD (EACH MORNING)
     Route: 065
     Dates: start: 20220118
  22. ALUMINUM HYDROXIDE\MAGNESIUM HYDROXIDE [Concomitant]
     Active Substance: ALUMINUM HYDROXIDE\MAGNESIUM HYDROXIDE
     Dosage: 2 DOSAGE FORM, QID (TEASPOONSFUL )
     Route: 065
     Dates: start: 20220701
  23. NEBIVOLOL [Concomitant]
     Active Substance: NEBIVOLOL
     Dosage: 2.5 MILLIGRAM, QD
     Route: 065
     Dates: start: 20200602
  24. NICARDIPINE HYDROCHLORIDE [Concomitant]
     Active Substance: NICARDIPINE HYDROCHLORIDE
     Dosage: 2 DOSAGE FORM, TID
     Route: 065
     Dates: start: 20200602
  25. CALCIUM CARBONATE\SODIUM ALGINATE\SODIUM BICARBONATE [Concomitant]
     Active Substance: CALCIUM CARBONATE\SODIUM ALGINATE\SODIUM BICARBONATE
     Dosage: 10 MILLIMOLE, QID (2X5ML SPOON)
     Route: 065
     Dates: start: 20220701, end: 20220713
  26. QUININE [Concomitant]
     Active Substance: QUININE
     Dosage: 1 DOSAGE FORM, HS (AT NIGHT)
     Route: 065
     Dates: start: 20220701
  27. SENNA [Concomitant]
     Active Substance: SENNA LEAF\SENNOSIDES\SENNOSIDES A AND B
     Dosage: 2 DOSAGE FORM, HS (AT NIGHT)
     Route: 065
     Dates: start: 20220701
  28. TRUSOPT [Concomitant]
     Active Substance: DORZOLAMIDE HYDROCHLORIDE
     Dosage: 1 DOSAGE FORM, BID (BOTH EYES)
     Route: 065
     Dates: start: 20220712

REACTIONS (1)
  - Arthralgia [Recovered/Resolved]

NARRATIVE: CASE EVENT DATE: 20220722
